FAERS Safety Report 5893910-X (Version None)
Quarter: 2008Q3

REPORT INFORMATION
  Report Type: 
  Country: None (occurrence: None)
  Receive Date: 20080923
  Receipt Date: 20080909
  Transmission Date: 20090109
  Serious: Yes (Hospitalization)
  Sender: FDA-Public Use
  Company Number: CA-AMGEN-US308585

PATIENT
  Sex: Male

DRUGS (7)
  1. ENBREL [Suspect]
     Indication: RHEUMATOID ARTHRITIS
     Route: 058
     Dates: start: 20020501, end: 20020801
  2. METHOTREXATE [Suspect]
     Indication: RHEUMATOID ARTHRITIS
     Route: 048
     Dates: start: 19990201, end: 20020801
  3. HYDROCHLOROTHIAZIDE [Concomitant]
     Dosage: UNKNOWN
  4. PANTOPRAZOLE SODIUM [Concomitant]
     Dosage: UNKNOWN
  5. CLOPIDOGREL [Concomitant]
     Dosage: UNKNOWN
  6. METFORMIN HCL [Concomitant]
     Dosage: UNKNOWN
  7. RAMIPRIL [Concomitant]
     Dosage: UNKNOWN

REACTIONS (10)
  - APLASTIC ANAEMIA [None]
  - ATRIAL FIBRILLATION [None]
  - BLOOD CREATINE INCREASED [None]
  - ENTEROCOCCAL BACTERAEMIA [None]
  - HYPOKALAEMIA [None]
  - PANCYTOPENIA [None]
  - PNEUMONIA [None]
  - STAPHYLOCOCCAL INFECTION [None]
  - URINARY TRACT INFECTION [None]
  - WOUND INFECTION [None]
